FAERS Safety Report 9690832 (Version 2)
Quarter: 2013Q4

REPORT INFORMATION
  Report Type: Spontaneous
  Country: US (occurrence: US)
  Receive Date: 20131115
  Receipt Date: 20131211
  Transmission Date: 20140711
  Serious: No
  Sender: FDA-Public Use
  Company Number: US-ROXANE LABORATORIES, INC.-2013-RO-01812RO

PATIENT
  Age: 63 Year
  Sex: Male

DRUGS (1)
  1. IRBESARTAN [Suspect]

REACTIONS (2)
  - Blood pressure increased [Unknown]
  - Product quality issue [Unknown]
